FAERS Safety Report 8301263-2 (Version None)
Quarter: 2012Q2

REPORT INFORMATION
  Report Type: 
  Country: None (occurrence: None)
  Receive Date: 20120420
  Receipt Date: 20120413
  Transmission Date: 20120825
  Serious: Yes (Hospitalization, Other)
  Sender: FDA-Public Use
  Company Number: DE-ABBOTT-12P-062-0902884-00

PATIENT
  Sex: Male
  Weight: 82 kg

DRUGS (3)
  1. PANTOPRAZOLE [Concomitant]
     Indication: PRODUCT USED FOR UNKNOWN INDICATION
     Dates: start: 20080101
  2. AZATHIOPRINE [Concomitant]
     Indication: PRODUCT USED FOR UNKNOWN INDICATION
     Dates: start: 20070101
  3. HUMIRA [Suspect]
     Indication: CROHN'S DISEASE
     Route: 058
     Dates: start: 20070823, end: 20120306

REACTIONS (5)
  - UNEVALUABLE EVENT [None]
  - WRIST FRACTURE [None]
  - ROAD TRAFFIC ACCIDENT [None]
  - WOUND INFECTION [None]
  - CLAVICLE FRACTURE [None]
